FAERS Safety Report 23843588 (Version 1)
Quarter: 2024Q2

REPORT INFORMATION
  Report Type: Spontaneous
  Country: GB (occurrence: GB)
  Receive Date: 20240510
  Receipt Date: 20240510
  Transmission Date: 20240716
  Serious: Yes (Life-Threatening, Hospitalization, Other)
  Sender: FDA-Public Use
  Company Number: GB-009507513-2405GBR002192

PATIENT

DRUGS (1)
  1. PEMBROLIZUMAB [Suspect]
     Active Substance: PEMBROLIZUMAB
     Indication: Malignant melanoma stage IV
     Dosage: 400 MILLIGRAM

REACTIONS (6)
  - Immune-mediated myositis [Unknown]
  - Immune-mediated myocarditis [Unknown]
  - Extraocular muscle disorder [Unknown]
  - Immune-mediated myasthenia gravis [Unknown]
  - Immune-mediated enterocolitis [Unknown]
  - Immune-mediated hepatitis [Unknown]
